FAERS Safety Report 5333985-X (Version None)
Quarter: 2007Q2

REPORT INFORMATION
  Report Type: 
  Country: None (occurrence: None)
  Receive Date: 20070308
  Receipt Date: 20070124
  Transmission Date: 20071010
  Serious: No
  Sender: FDA-Public Use
  Company Number: 2007-BP-01290BP

PATIENT
  Age: 77 Year
  Sex: Female

DRUGS (6)
  1. SPIRIVA [Suspect]
     Dosage: 18 MCG (18 MCG, 1 IN 1 D),IH
     Route: 055
     Dates: start: 20050101
  2. SPIRIVA [Suspect]
  3. SPIRIVA [Suspect]
  4. SPIRIVA [Suspect]
  5. SPIRIVA [Suspect]
  6. SPIRIVA [Suspect]

REACTIONS (1)
  - DYSPNOEA [None]
